FAERS Safety Report 7372030-1 (Version None)
Quarter: 2011Q1

REPORT INFORMATION
  Report Type: 
  Country: None (occurrence: None)
  Receive Date: 20110324
  Receipt Date: 20110309
  Transmission Date: 20110831
  Serious: Yes (Other)
  Sender: FDA-Public Use
  Company Number: PHFR2011GB01848

PATIENT
  Sex: Male

DRUGS (13)
  1. INSULATARD [Concomitant]
  2. GLEEVEC [Suspect]
     Indication: GASTROINTESTINAL STROMAL TUMOUR
     Dosage: 400 MG, UNK
     Route: 048
     Dates: start: 20010101, end: 20030101
  3. SUNITINIB MALATE [Concomitant]
     Dosage: 37.5 MG, UNK
     Route: 048
     Dates: start: 20100801
  4. DILTIAZEM HCL [Concomitant]
  5. ASPIRIN [Concomitant]
  6. SPIRONOLACTONE [Concomitant]
  7. GLEEVEC [Suspect]
     Dosage: 800 MG, UNK
     Route: 048
     Dates: start: 20090401, end: 20100801
  8. GLEEVEC [Suspect]
     Dosage: 400 MG, UNK
     Route: 048
     Dates: start: 20050101, end: 20090101
  9. QUININE SULFATE [Concomitant]
  10. SIMVASTATIN [Concomitant]
  11. RAMIPRIL [Concomitant]
  12. BISOPROLOL [Concomitant]
  13. LANSOPRAZOLE [Concomitant]

REACTIONS (7)
  - ATRIAL FIBRILLATION [None]
  - NEOPLASM MALIGNANT [None]
  - VIRAL CARDIOMYOPATHY [None]
  - METASTASES TO LIVER [None]
  - GASTROINTESTINAL STROMAL TUMOUR [None]
  - METASTASES TO PERITONEUM [None]
  - FATIGUE [None]
